FAERS Safety Report 4646820-X (Version None)
Quarter: 2005Q2

REPORT INFORMATION
  Report Type: 
  Country: None (occurrence: None)
  Receive Date: 20050331
  Receipt Date: 20041201
  Transmission Date: 20051028
  Serious: No
  Sender: FDA-Public Use
  Company Number: 04P-163-0281322-00

PATIENT
  Age: 72 Year
  Sex: Male
  Weight: 58.9676 kg

DRUGS (10)
  1. HUMIRA [Suspect]
     Indication: RHEUMATOID ARTHRITIS
     Dosage: 40 MG, 1 IN 2 WK, SUBCUTANEOUS
     Route: 058
     Dates: start: 20040901
  2. METHOTREXATE [Concomitant]
  3. ALENDRONATE SODIUM [Concomitant]
  4. VOLTAREN [Concomitant]
  5. PREDNISONE TAB [Concomitant]
  6. ATORVASTATIN CALCIUM [Concomitant]
  7. PANTOPRAZOLE [Concomitant]
  8. LOPRESSOR SR [Concomitant]
  9. XALATAN [Concomitant]
  10. DORZOLAMIDE HYDROCHLORIDE [Concomitant]

REACTIONS (4)
  - BALANCE DISORDER [None]
  - FATIGUE [None]
  - MUSCULAR WEAKNESS [None]
  - MYALGIA [None]
